FAERS Safety Report 4852581-1 (Version None)
Quarter: 2005Q4

REPORT INFORMATION
  Report Type: 
  Country: None (occurrence: None)
  Receive Date: 20051213
  Receipt Date: 20050809
  Transmission Date: 20060501
  Serious: Yes (Other)
  Sender: FDA-Public Use
  Company Number: PHBS2005JP11715

PATIENT
  Age: 63 Year
  Sex: Female
  Weight: 53 kg

DRUGS (6)
  1. AREDIA [Suspect]
     Indication: METASTASES TO BONE
     Dosage: 45 MG / 2 WEEKS
     Route: 042
     Dates: start: 20030312
  2. FURTULON [Suspect]
     Indication: BREAST CANCER METASTATIC
     Dosage: 800 MG/D
     Route: 048
     Dates: start: 20030106
  3. PANLEEF [Concomitant]
     Indication: BREAST CANCER
     Dosage: 20 MG/D
     Route: 048
     Dates: start: 20030106
  4. ENDOXAN [Concomitant]
     Indication: BREAST CANCER
     Dosage: 100 MG/D
     Route: 048
     Dates: start: 20030106, end: 20030409
  5. FARMORUBICIN [Concomitant]
     Indication: BREAST CANCER
     Dosage: 30 MG/D
     Route: 042
     Dates: start: 20030312, end: 20031022
  6. CHEMOTHERAPEUTICS,OTHER [Concomitant]
     Route: 065

REACTIONS (2)
  - IMPAIRED HEALING [None]
  - TOOTH EXTRACTION [None]
